FAERS Safety Report 7974879-0 (Version None)
Quarter: 2011Q4

REPORT INFORMATION
  Report Type: 
  Country: None (occurrence: None)
  Receive Date: 20111213
  Receipt Date: 20111212
  Transmission Date: 20120403
  Serious: Yes (Other)
  Sender: FDA-Public Use
  Company Number: US-PFIZER INC-2011270805

PATIENT
  Sex: Female
  Weight: 58.503 kg

DRUGS (1)
  1. LYRICA [Suspect]
     Indication: FIBROMYALGIA
     Dosage: 75 MG, 1X/DAY
     Route: 048
     Dates: start: 20111028

REACTIONS (3)
  - SOMNOLENCE [None]
  - DRUG INEFFECTIVE [None]
  - WEIGHT INCREASED [None]
